FAERS Safety Report 7081137-8 (Version None)
Quarter: 2010Q4

REPORT INFORMATION
  Report Type: 
  Country: None (occurrence: None)
  Receive Date: 20101103
  Receipt Date: 20101102
  Transmission Date: 20110411
  Serious: Yes (Other)
  Sender: FDA-Public Use
  Company Number: A0890356A

PATIENT
  Sex: Female

DRUGS (5)
  1. SORIATANE [Suspect]
     Indication: PSORIASIS
     Route: 048
     Dates: start: 20080601, end: 20080601
  2. CONTRACEPTIVE [Suspect]
     Indication: CONTRACEPTION
  3. NUVARING [Suspect]
     Indication: CONTRACEPTION
  4. ENBREL [Concomitant]
  5. PROZAC [Concomitant]

REACTIONS (8)
  - ASTHENIA [None]
  - DRUG EXPOSURE DURING PREGNANCY [None]
  - FATIGUE [None]
  - GAIT DISTURBANCE [None]
  - HEPATIC PAIN [None]
  - MALAISE [None]
  - RENAL PAIN [None]
  - UNINTENDED PREGNANCY [None]
